FAERS Safety Report 8874252 (Version 2)
Quarter: 2012Q4

REPORT INFORMATION
  Report Type: 
  Country: US (occurrence: US)
  Receive Date: 20121023
  Receipt Date: 20121204
  Transmission Date: 20130627
  Serious: No
  Sender: FDA-Public Use
  Company Number: US-ASTRAZENECA-2012SE78404

PATIENT
  Age: 71 Year
  Sex: Female
  Weight: 83.9 kg

DRUGS (7)
  1. SYMBICORT [Suspect]
     Indication: ASTHMA
     Dosage: 160 MCG, DAILY
     Route: 055
     Dates: start: 2012
  2. SYMBICORT [Suspect]
     Indication: ASTHMA
     Dosage: 160 MCG ONE PUFF AS NEEDED
     Route: 055
     Dates: start: 2012
  3. LISINOPRIL [Suspect]
     Indication: HYPERTENSION
     Route: 048
     Dates: start: 1998
  4. LOSARTAN [Concomitant]
     Indication: HYPERTENSION
     Route: 048
  5. PRAVASTATIN [Concomitant]
     Indication: BLOOD CHOLESTEROL INCREASED
     Route: 048
  6. RANITIDINE [Concomitant]
     Indication: GASTROOESOPHAGEAL REFLUX DISEASE
     Route: 048
     Dates: start: 1985
  7. ALBUTEROL [Concomitant]
     Route: 055

REACTIONS (2)
  - Cough [Unknown]
  - Off label use [Unknown]
